FAERS Safety Report 4850584-4 (Version None)
Quarter: 2005Q4

REPORT INFORMATION
  Report Type: 
  Country: None (occurrence: None)
  Receive Date: 20051208
  Receipt Date: 20051128
  Transmission Date: 20060501
  Serious: Yes (Other)
  Sender: FDA-Public Use
  Company Number: BR-2005-025286

PATIENT
  Age: 33 Year
  Sex: Female

DRUGS (1)
  1. YASMIN [Suspect]
     Indication: ORAL CONTRACEPTION
     Dosage: 1 TAB(S), OTHER, ORAL
     Route: 048
     Dates: start: 20050501, end: 20050501

REACTIONS (6)
  - ALOPECIA UNIVERSALIS [None]
  - DEPRESSION [None]
  - GENERALISED ERYTHEMA [None]
  - NAUSEA [None]
  - PRURITUS GENERALISED [None]
  - VOMITING [None]
